FAERS Safety Report 10921751 (Version 3)
Quarter: 2016Q1

REPORT INFORMATION
  Report Type: Report from Study
  Country: DE (occurrence: DE)
  Receive Date: 20150317
  Receipt Date: 20160212
  Transmission Date: 20160525
  Serious: Yes (Hospitalization)
  Sender: FDA-Public Use
  Company Number: DE-ABBVIE-15P-062-1359194-00

PATIENT
  Age: 64 Year
  Sex: Male
  Weight: 110 kg

DRUGS (6)
  1. EXVIERA [Suspect]
     Active Substance: DASABUVIR
     Indication: CHRONIC HEPATITIS C
     Route: 048
     Dates: start: 20150204
  2. PANTOPRAZOLE [Concomitant]
     Active Substance: PANTOPRAZOLE SODIUM
     Indication: PRODUCT USED FOR UNKNOWN INDICATION
  3. TARGIN [Concomitant]
     Active Substance: NALOXONE HYDROCHLORIDE\OXYCODONE HYDROCHLORIDE
     Indication: PRODUCT USED FOR UNKNOWN INDICATION
     Dosage: 5/2.5 MG
  4. XARELTO [Concomitant]
     Active Substance: RIVAROXABAN
     Indication: PRODUCT USED FOR UNKNOWN INDICATION
     Dates: start: 20150810
  5. VIEKIRAX [Suspect]
     Active Substance: OMBITASVIR\PARITAPREVIR\RITONAVIR
     Indication: CHRONIC HEPATITIS C
     Dosage: 12.5/75/50 MG
     Route: 048
     Dates: start: 20150204
  6. METOPROLOL. [Concomitant]
     Active Substance: METOPROLOL
     Indication: PRODUCT USED FOR UNKNOWN INDICATION
     Dates: start: 20150810

REACTIONS (17)
  - Fall [Unknown]
  - Confabulation [Unknown]
  - Headache [Unknown]
  - Cholelithiasis [Unknown]
  - Cholecystitis [Recovering/Resolving]
  - Dehydration [Unknown]
  - Contusion [Unknown]
  - Cholangitis infective [Recovered/Resolved]
  - Device occlusion [Recovered/Resolved]
  - Bile duct stone [Recovering/Resolving]
  - Intracranial venous sinus thrombosis [Unknown]
  - Atrial fibrillation [Unknown]
  - Acute prerenal failure [Recovering/Resolving]
  - Retroperitoneal haematoma [Unknown]
  - Retrograde amnesia [Unknown]
  - Purulence [Unknown]
  - Systemic inflammatory response syndrome [Unknown]

NARRATIVE: CASE EVENT DATE: 201502
